FAERS Safety Report 4338630-8 (Version None)
Quarter: 2004Q2

REPORT INFORMATION
  Report Type: 
  Country: None (occurrence: None)
  Receive Date: 20040414
  Receipt Date: 20040412
  Transmission Date: 20050107
  Serious: Yes (Other)
  Sender: FDA-Public Use
  Company Number: US-BRISTOL-MYERS SQUIBB COMPANY-12557336

PATIENT

DRUGS (4)
  1. CYCLOPHOSPHAMIDE [Suspect]
     Indication: STEM CELL TRANSPLANT
  2. ITRACONAZOLE [Interacting]
     Indication: ANTIFUNGAL PROPHYLAXIS
     Dosage: OR 2.5 MG/KG X3/DAY ORAL
     Route: 042
  3. FLUCONAZOLE [Interacting]
     Indication: ANTIFUNGAL PROPHYLAXIS
     Dosage: IV OR ORAL
  4. RADIATION THERAPY [Concomitant]
     Indication: STEM CELL TRANSPLANT
     Dosage: TOTAL BODY

REACTIONS (5)
  - BLOOD BILIRUBIN INCREASED [None]
  - BLOOD CREATININE INCREASED [None]
  - DRUG INTERACTION [None]
  - DRUG TOXICITY [None]
  - METABOLIC DISORDER [None]
